FAERS Safety Report 16482487 (Version 2)
Quarter: 2019Q4

REPORT INFORMATION
  Report Type: Spontaneous
  Country: US (occurrence: US)
  Receive Date: 20190627
  Receipt Date: 20191105
  Transmission Date: 20200122
  Serious: Yes (Other)
  Sender: FDA-Public Use
  Company Number: US-TEVA-2019-US-1069064

PATIENT
  Age: 57 Year
  Sex: Female

DRUGS (16)
  1. DIAZEPAM. [Suspect]
     Active Substance: DIAZEPAM
     Dosage: 15 MILLIGRAM DAILY; 5 MG; 1 AT 9:30 AM, 1 AT 4 PM AND 1 AT BEDTIME
     Route: 048
     Dates: start: 20191003
  2. HYDROCODONE/ACETAMINOPHEN [Concomitant]
     Active Substance: ACETAMINOPHEN\HYDROCODONE
     Dosage: 5/325 MG; 1 TABLET IN THE MORNING AND 1/2 TABLET AT LUNCH, EVENING AND AT NIGHT TIME EACH
  3. DIAZEPAM. [Suspect]
     Active Substance: DIAZEPAM
     Dosage: 10 MILLIGRAM DAILY; 5 MG TWICE DAILY
     Route: 048
     Dates: start: 201908
  4. TRAZODONE [Concomitant]
     Active Substance: TRAZODONE HYDROCHLORIDE
     Dosage: 100 MILLIGRAM DAILY; 100 MG; 1 AT BED TIME
  5. CARVEDILOL. [Concomitant]
     Active Substance: CARVEDILOL
     Dosage: 50 MILLIGRAM DAILY;
     Route: 048
  6. LISINOPRIL. [Concomitant]
     Active Substance: LISINOPRIL
     Dosage: 1 TABLET EVERY MORNING AND 3 TABLETS EVERY EVENING
     Route: 048
  7. BENZTROPINE MESYLATE. [Concomitant]
     Active Substance: BENZTROPINE MESYLATE
     Dosage: 1 MG IN THE MORNING AND 1 TABLET AT SUPPER
  8. LATUDA [Concomitant]
     Active Substance: LURASIDONE HYDROCHLORIDE
     Dosage: 80 MG; 1/2 TABLET AT BREAKFAST AND 1/2 AT LUNCH
  9. TAMSULOSIN HCL [Concomitant]
     Active Substance: TAMSULOSIN HYDROCHLORIDE
     Dosage: 0.4 MG; 1 TABLET IN THE MORNING
  10. TAMSULOSIN HCL [Concomitant]
     Active Substance: TAMSULOSIN HYDROCHLORIDE
     Dosage: 0.4 MG; 1 TABLET IN THE MORNING
  11. NARCAN [Concomitant]
     Active Substance: NALOXONE HYDROCHLORIDE
     Dosage: 4 MG, 1 OF INSTILL 1 SPRAY IN TO NOSTRIL ONCE AS NEEDED MAY REPEAT EVERY 3 MINUTES UNTIL RESPOND
     Route: 045
  12. ELAVIL [Concomitant]
     Active Substance: AMITRIPTYLINE HYDROCHLORIDE
     Dosage: 2 TABLETS AT BEDTIME
  13. DILTIAZEM HCL [Concomitant]
     Active Substance: DILTIAZEM HYDROCHLORIDE
     Dosage: 240 MILLIGRAM DAILY;
     Route: 048
  14. NITROGLYCERIN. [Concomitant]
     Active Substance: NITROGLYCERIN
     Indication: ANGINA PECTORIS
     Dosage: 0.4 MG UNDER TONGUE EVERY 5 MINUTES AS NEEDED; A MAXIMUM OF 3 DOSES
     Route: 060
  15. PANTOPRAZOLE SODIUM. [Concomitant]
     Active Substance: PANTOPRAZOLE SODIUM
     Dosage: 1 TABLET EVERY MORNING
  16. BACLOFEN. [Concomitant]
     Active Substance: BACLOFEN
     Dosage: TO TAKE 1/2 TABLET 3 TIMES DAILY

REACTIONS (19)
  - Crying [Unknown]
  - Agitation [Not Recovered/Not Resolved]
  - Gait disturbance [Unknown]
  - Oropharyngeal pain [Unknown]
  - Tremor [Not Recovered/Not Resolved]
  - Dysphemia [Not Recovered/Not Resolved]
  - Memory impairment [Not Recovered/Not Resolved]
  - Hallucination [Unknown]
  - Restlessness [Not Recovered/Not Resolved]
  - Dyspnoea [Unknown]
  - Muscular weakness [Unknown]
  - Neuroleptic malignant syndrome [Not Recovered/Not Resolved]
  - Panic attack [Not Recovered/Not Resolved]
  - Balance disorder [Not Recovered/Not Resolved]
  - Mood altered [Unknown]
  - Speech disorder [Unknown]
  - Dysphagia [Unknown]
  - Aggression [Not Recovered/Not Resolved]
  - Confusional state [Unknown]
